FAERS Safety Report 14193089 (Version 1)
Quarter: 2017Q4

REPORT INFORMATION
  Report Type: Spontaneous
  Country: BR (occurrence: BR)
  Receive Date: 20171115
  Receipt Date: 20171115
  Transmission Date: 20180321
  Serious: Yes (Hospitalization)
  Sender: FDA-Public Use
  Company Number: BR-SA-2017SA222201

PATIENT

DRUGS (2)
  1. CLEXANE [Suspect]
     Active Substance: ENOXAPARIN SODIUM
     Indication: PACEMAKER GENERATED RHYTHM
     Route: 051
     Dates: end: 20171011
  2. CLEXANE [Suspect]
     Active Substance: ENOXAPARIN SODIUM
     Indication: ATRIAL FIBRILLATION
     Route: 051
     Dates: end: 20171011

REACTIONS (7)
  - Renal failure [Recovering/Resolving]
  - Haemorrhage [Recovering/Resolving]
  - Pneumonia [Recovering/Resolving]
  - Retroperitoneal haematoma [Recovering/Resolving]
  - Shock haemorrhagic [Recovering/Resolving]
  - Product use issue [Unknown]
  - Cardiac failure [Recovering/Resolving]

NARRATIVE: CASE EVENT DATE: 20171013
